FAERS Safety Report 13754360 (Version 2)
Quarter: 2017Q3

REPORT INFORMATION
  Report Type: Spontaneous
  Country: FR (occurrence: FR)
  Receive Date: 20170714
  Receipt Date: 20170926
  Transmission Date: 20171127
  Serious: Yes (Hospitalization)
  Sender: FDA-Public Use
  Company Number: FR-MERCK KGAA-2023361

PATIENT
  Age: 87 Year
  Sex: Female

DRUGS (10)
  1. NOVONORM [Suspect]
     Active Substance: REPAGLINIDE
     Route: 048
  2. NOVOTHYROX [Suspect]
     Active Substance: LEVOTHYROXINE SODIUM
     Indication: PRODUCT USED FOR UNKNOWN INDICATION
     Route: 048
  3. GALVUS [Suspect]
     Active Substance: VILDAGLIPTIN
     Route: 048
  4. KARDEGIC [Suspect]
     Active Substance: ASPIRIN LYSINE
     Route: 048
  5. SEROPLEX [Suspect]
     Active Substance: ESCITALOPRAM OXALATE
  6. PHOSPHOSORB [Suspect]
     Active Substance: CALCIUM ACETATE
     Route: 048
     Dates: start: 201704
  7. INEXIUM [Suspect]
     Active Substance: ESOMEPRAZOLE
     Route: 048
  8. LASILIX SPECIAL [Suspect]
     Active Substance: FUROSEMIDE
  9. UVEDOSE [Suspect]
     Active Substance: CHOLECALCIFEROL
     Route: 048
  10. PARACETAMOL [Suspect]
     Active Substance: ACETAMINOPHEN

REACTIONS (2)
  - Pemphigoid [Recovering/Resolving]
  - Dermatitis bullous [Recovering/Resolving]

NARRATIVE: CASE EVENT DATE: 20170509
